FAERS Safety Report 24313132 (Version 1)
Quarter: 2024Q3

REPORT INFORMATION
  Report Type: Spontaneous
  Country: PL (occurrence: PL)
  Receive Date: 20240912
  Receipt Date: 20240912
  Transmission Date: 20241017
  Serious: Yes (Life-Threatening, Hospitalization)
  Sender: TEVA
  Company Number: None

PATIENT
  Age: 67 Year
  Sex: Female
  Weight: 85 kg

DRUGS (2)
  1. LISINOPRIL [Suspect]
     Active Substance: LISINOPRIL
     Indication: Toxicity to various agents
     Route: 048
     Dates: start: 20200721
  2. DOXEPIN [Suspect]
     Active Substance: DOXEPIN
     Indication: Toxicity to various agents
     Route: 048
     Dates: start: 20200721

REACTIONS (3)
  - Altered state of consciousness [Recovering/Resolving]
  - Hypertension [Recovering/Resolving]
  - Bradycardia [Recovering/Resolving]

NARRATIVE: CASE EVENT DATE: 20200721
